FAERS Safety Report 9403364 (Version 2)
Quarter: 2013Q3

REPORT INFORMATION
  Report Type: Spontaneous
  Country: US (occurrence: US)
  Receive Date: 20130716
  Receipt Date: 20130814
  Transmission Date: 20140515
  Serious: Yes (Life-Threatening, Hospitalization, Other)
  Sender: FDA-Public Use
  Company Number: US-MERCK-1307USA006739

PATIENT
  Age: 64 Year
  Sex: Male
  Weight: 56.69 kg

DRUGS (9)
  1. INVANZ [Suspect]
     Indication: OSTEOMYELITIS
     Dosage: 1 G, QD, OVER A 30 MINUTE INFUSION
     Route: 041
     Dates: start: 20130406, end: 20130413
  2. CUBICIN [Suspect]
  3. KEPPRA [Concomitant]
     Dosage: UNK
     Route: 048
  4. DILANTIN [Concomitant]
  5. SODIUM CHLORIDE [Concomitant]
     Dosage: IV FLUSHES
     Route: 042
  6. HEPARIN [Concomitant]
     Dosage: IV FLUSHES
     Route: 042
  7. CARBOHYDRATES (UNSPECIFIED) (+) FAT (UNSPECIFIED) (+) MINERALS (UNSPEC [Concomitant]
  8. CYTOMEL [Concomitant]
     Dosage: UNK
     Route: 048
  9. PROTONIX [Concomitant]
     Dosage: UNK
     Route: 048

REACTIONS (4)
  - Cerebrovascular accident [Recovered/Resolved]
  - Vomiting [Recovering/Resolving]
  - Pyrexia [Recovering/Resolving]
  - Convulsion [Recovered/Resolved]
